FAERS Safety Report 6198217-1 (Version None)
Quarter: 2009Q2

REPORT INFORMATION
  Report Type: 
  Country: None (occurrence: None)
  Receive Date: 20090519
  Receipt Date: 20090508
  Transmission Date: 20091009
  Serious: Yes (Hospitalization)
  Sender: FDA-Public Use
  Company Number: FABR-1000321

PATIENT
  Age: 40 Year
  Sex: Female

DRUGS (4)
  1. FABRAZYME [Suspect]
     Indication: FABRY'S DISEASE
     Dosage: 1 MG/KG, Q2W, INTRAVENOUS
     Route: 042
     Dates: start: 20060503
  2. ZOLOFT [Concomitant]
  3. ORAL CONTRACEPTION NOS (ORAL CONTRACEPTIVE NOS) [Concomitant]
  4. KLONOPIN [Concomitant]

REACTIONS (9)
  - ABDOMINAL DISCOMFORT [None]
  - BRADYCARDIA [None]
  - CARDIAC MURMUR [None]
  - CHOLECYSTITIS CHRONIC [None]
  - DIZZINESS [None]
  - PALPITATIONS [None]
  - PRESYNCOPE [None]
  - VENTRICULAR HYPERTROPHY [None]
  - VISUAL IMPAIRMENT [None]
